FAERS Safety Report 10551135 (Version 1)
Quarter: 2014Q4

REPORT INFORMATION
  Report Type: Spontaneous
  Country: US (occurrence: US)
  Receive Date: 20141029
  Receipt Date: 20141029
  Transmission Date: 20150529
  Serious: No
  Sender: FDA-Public Use
  Company Number: US-SHIRE-US201406898

PATIENT
  Age: 57 Year
  Sex: Female
  Weight: 71.66 kg

DRUGS (13)
  1. NEXIUM [Concomitant]
     Active Substance: ESOMEPRAZOLE MAGNESIUM
     Indication: GASTROOESOPHAGEAL REFLUX DISEASE
     Dosage: 40 MG, 1X/DAY:QD (AM)
     Route: 065
  2. COLACE [Concomitant]
     Active Substance: DOCUSATE SODIUM
     Indication: ADVERSE EVENT
     Dosage: 100 MG, 1X/DAY:QD
     Route: 065
  3. MULTIVITAMINS, PLAIN [Concomitant]
     Active Substance: VITAMINS
     Indication: PRODUCT USED FOR UNKNOWN INDICATION
     Dosage: UNK, 1X/DAY:QD
     Route: 065
  4. VITAMIN D [Concomitant]
     Active Substance: CHOLECALCIFEROL
     Indication: VITAMIN D DEFICIENCY
     Dosage: 200 MG, 1X/DAY:QD (AM)
     Route: 065
     Dates: start: 2005
  5. COQ10                              /00517201/ [Concomitant]
     Indication: MYOPATHY
     Dosage: 300 MG, 2X/DAY:BID (12 AND HS)
     Route: 065
     Dates: start: 2011
  6. RANITIDINE [Concomitant]
     Active Substance: RANITIDINE\RANITIDINE HYDROCHLORIDE
     Indication: GASTROOESOPHAGEAL REFLUX DISEASE
     Dosage: 150 MG, 2X/DAY:BID (12 AND HS)
     Route: 065
     Dates: start: 2007
  7. PROBIOTICS NOS [Concomitant]
     Active Substance: PROBIOTICS NOS
     Indication: PRODUCT USED FOR UNKNOWN INDICATION
     Dosage: UNK UNK, 1X/DAY:QD
     Route: 065
  8. MELATONIN [Concomitant]
     Active Substance: MELATONIN
     Indication: SLEEP DISORDER
     Dosage: 5 MG, UNKNOWN
     Route: 065
     Dates: start: 2009
  9. DULOXETINE HYDROCHLORIDE. [Concomitant]
     Active Substance: DULOXETINE HYDROCHLORIDE
     Dosage: 90 MG, 1X/DAY:QD (PM)
     Route: 065
     Dates: start: 2006
  10. VYVANSE [Suspect]
     Active Substance: LISDEXAMFETAMINE DIMESYLATE
     Indication: ATTENTION DEFICIT/HYPERACTIVITY DISORDER
     Dosage: 50 MG, 1X/DAY:QD
     Route: 048
     Dates: start: 201211, end: 201312
  11. VYVANSE [Suspect]
     Active Substance: LISDEXAMFETAMINE DIMESYLATE
     Dosage: UNK, 1X/DAY:QD ( A LITTLE BIT OF 50 MG CAPSULE CONTENTS)
     Route: 048
     Dates: start: 201312, end: 201401
  12. ASPIRIN. [Concomitant]
     Active Substance: ASPIRIN
     Indication: FAMILIAL RISK FACTOR
     Dosage: 81 MG, UNKNOWN
     Route: 065
     Dates: start: 1996
  13. DULOXETINE HYDROCHLORIDE. [Concomitant]
     Active Substance: DULOXETINE HYDROCHLORIDE
     Indication: PAIN MANAGEMENT
     Dosage: 60 MG, 1X/DAY:QD (AM)
     Route: 065
     Dates: start: 2006

REACTIONS (7)
  - Bladder spasm [Recovering/Resolving]
  - Urinary incontinence [Recovered/Resolved]
  - Vulvovaginal dryness [Unknown]
  - Vulvovaginal pain [Unknown]
  - Stomatitis [Recovered/Resolved]
  - Dry mouth [Recovered/Resolved]
  - Incorrect dose administered [Recovered/Resolved]

NARRATIVE: CASE EVENT DATE: 201312
